FAERS Safety Report 6146560-4 (Version None)
Quarter: 2009Q2

REPORT INFORMATION
  Report Type: 
  Country: None (occurrence: None)
  Receive Date: 20090407
  Receipt Date: 20090330
  Transmission Date: 20091009
  Serious: Yes (Hospitalization)
  Sender: FDA-Public Use
  Company Number: JP-MERCK-0903USA01014

PATIENT
  Age: 36 Year
  Sex: Female
  Weight: 49 kg

DRUGS (7)
  1. PEPCID RPD [Suspect]
     Route: 048
     Dates: start: 20090217, end: 20090302
  2. FOSAMAX [Suspect]
     Indication: OSTEOPOROSIS PROPHYLAXIS
     Route: 048
     Dates: start: 20090217, end: 20090302
  3. WARFARIN [Suspect]
     Indication: THROMBOSIS PROPHYLAXIS
     Route: 048
     Dates: start: 20090217, end: 20090302
  4. BAKTAR [Suspect]
     Indication: ANTIFUNGAL PROPHYLAXIS
     Route: 048
     Dates: start: 20090217, end: 20090302
  5. DIOVAN [Concomitant]
     Route: 048
     Dates: start: 20081201, end: 20090302
  6. PREDONINE [Concomitant]
     Route: 065
     Dates: start: 20090220
  7. SOL MELCORT [Concomitant]
     Route: 065
     Dates: start: 20090217, end: 20090305

REACTIONS (1)
  - ERYTHEMA [None]
